FAERS Safety Report 5519030-1 (Version None)
Quarter: 2007Q4

REPORT INFORMATION
  Report Type: 
  Country: None (occurrence: None)
  Receive Date: 20071116
  Receipt Date: 20071109
  Transmission Date: 20080405
  Serious: Yes (Hospitalization)
  Sender: FDA-Public Use
  Company Number: PHBS2007NO18853

PATIENT
  Age: 44 Year
  Sex: Female

DRUGS (2)
  1. SANDIMMUNE [Concomitant]
  2. EXJADE [Suspect]
     Indication: APLASTIC ANAEMIA

REACTIONS (3)
  - ASTHENIA [None]
  - FLUSHING [None]
  - PETECHIAE [None]
